FAERS Safety Report 6279216-8 (Version None)
Quarter: 2009Q3

REPORT INFORMATION
  Report Type: 
  Country: None (occurrence: None)
  Receive Date: 20090723
  Receipt Date: 20080822
  Transmission Date: 20100115
  Serious: No
  Sender: FDA-Public Use
  Company Number: US-AMGEN-KDL304037

PATIENT
  Sex: Male
  Weight: 43.1 kg

DRUGS (6)
  1. PROCRIT [Suspect]
     Indication: RENAL FAILURE CHRONIC
     Dates: start: 20070801
  2. AMLODIPINE [Concomitant]
  3. BENTYL [Concomitant]
  4. CALCITRIOL [Concomitant]
  5. FEOSOL [Concomitant]
  6. CALCIUM CARBONATE [Concomitant]

REACTIONS (3)
  - ARTHRALGIA [None]
  - MALAISE [None]
  - PAIN IN EXTREMITY [None]
